FAERS Safety Report 14711838 (Version 2)
Quarter: 2018Q2

REPORT INFORMATION
  Report Type: Report from Study
  Country: None (occurrence: NL)
  Receive Date: 20180403
  Receipt Date: 20180413
  Transmission Date: 20180711
  Serious: Yes (Hospitalization, Other)
  Sender: FDA-Public Use
  Company Number: NL-ABBVIE-18K-114-2310025-00

PATIENT
  Age: 62 Year
  Sex: Female

DRUGS (1)
  1. HUMIRA [Suspect]
     Active Substance: ADALIMUMAB
     Indication: CROHN^S DISEASE
     Route: 058
     Dates: start: 20171020

REACTIONS (4)
  - Gastric perforation [Recovering/Resolving]
  - Pain [Recovering/Resolving]
  - Post procedural complication [Recovering/Resolving]
  - Intestinal perforation [Recovering/Resolving]

NARRATIVE: CASE EVENT DATE: 201803
